FAERS Safety Report 9863780 (Version 1)
Quarter: 2014Q1

REPORT INFORMATION
  Report Type: Spontaneous
  Country: US (occurrence: US)
  Receive Date: 20140203
  Receipt Date: 20140203
  Transmission Date: 20141002
  Serious: No
  Sender: FDA-Public Use
  Company Number: US-PFIZER INC-2014029925

PATIENT
  Sex: 0

DRUGS (2)
  1. EFFEXOR XR [Suspect]
     Dosage: 300 MG, UNK
  2. EFFEXOR XR [Suspect]
     Dosage: UNK, TRIED TO REDUCE THE DOSE

REACTIONS (1)
  - Condition aggravated [Unknown]
